FAERS Safety Report 24216519 (Version 1)
Quarter: 2024Q3

REPORT INFORMATION
  Report Type: Spontaneous
  Country: BE (occurrence: BE)
  Receive Date: 20240816
  Receipt Date: 20240816
  Transmission Date: 20241017
  Serious: Yes (Other)
  Sender: RANBAXY
  Company Number: BE-SUN PHARMACEUTICAL INDUSTRIES LTD-2024R1-463023

PATIENT
  Age: 68 Year
  Sex: Male

DRUGS (7)
  1. SULFASALAZINE [Suspect]
     Active Substance: SULFASALAZINE
     Indication: Mucocutaneous ulceration
     Dosage: 1 GRAM, BID
     Route: 065
  2. METFORMIN [Suspect]
     Active Substance: METFORMIN HYDROCHLORIDE
     Indication: Mucocutaneous ulceration
     Dosage: UNK
     Route: 065
  3. AMLODIPINE [Suspect]
     Active Substance: AMLODIPINE BESYLATE
     Indication: Mucocutaneous ulceration
     Dosage: UNK
     Route: 065
  4. VALSARTAN [Suspect]
     Active Substance: VALSARTAN
     Indication: Mucocutaneous ulceration
     Dosage: UNK
     Route: 065
  5. BISOPROLOL [Suspect]
     Active Substance: BISOPROLOL\BISOPROLOL FUMARATE
     Indication: Mucocutaneous ulceration
     Dosage: UNK
     Route: 065
  6. ALLOPURINOL [Suspect]
     Active Substance: ALLOPURINOL
     Indication: Mucocutaneous ulceration
     Dosage: UNK
     Route: 065
  7. OMEPRAZOLE [Suspect]
     Active Substance: OMEPRAZOLE
     Indication: Mucocutaneous ulceration
     Dosage: UNK
     Route: 065

REACTIONS (1)
  - Epstein Barr virus positive mucocutaneous ulcer [Unknown]
